FAERS Safety Report 8152681-7 (Version None)
Quarter: 2012Q1

REPORT INFORMATION
  Report Type: 
  Country: None (occurrence: None)
  Receive Date: 20120221
  Receipt Date: 20120210
  Transmission Date: 20120608
  Serious: Yes (Death, Other)
  Sender: FDA-Public Use
  Company Number: FR-GENZYME-CERZ-1002391

PATIENT
  Sex: Female

DRUGS (2)
  1. TOPIRAMATE [Concomitant]
     Indication: PRODUCT USED FOR UNKNOWN INDICATION
     Route: 065
  2. CEREZYME [Suspect]
     Dosage: 400 U, Q2W
     Route: 042
     Dates: start: 20100915, end: 20120106

REACTIONS (3)
  - NEUROLOGICAL DECOMPENSATION [None]
  - CARDIO-RESPIRATORY DISTRESS [None]
  - RESPIRATORY TRACT INFECTION [None]
